FAERS Safety Report 9842448 (Version 2)
Quarter: 2014Q1

REPORT INFORMATION
  Report Type: Spontaneous
  Country: US (occurrence: US)
  Receive Date: 20140124
  Receipt Date: 20140124
  Transmission Date: 20141002
  Serious: No
  Sender: FDA-Public Use
  Company Number: US-GILEAD-2011-0039891

PATIENT
  Age: 52 Year
  Sex: Male

DRUGS (14)
  1. RANEXA [Suspect]
     Indication: ANGINA PECTORIS
     Dates: end: 20110520
  2. FENTANYL [Concomitant]
  3. ASPIRIN [Concomitant]
  4. LISINOPRIL [Concomitant]
  5. FLOMAX [Concomitant]
  6. FEXOFENADINE [Concomitant]
  7. VALIUM [Concomitant]
  8. ULORIC [Concomitant]
  9. B-100 COMPLEX [Concomitant]
  10. FLUTICASONE [Concomitant]
  11. FENOFIBRATE [Concomitant]
  12. ATENOLOL [Concomitant]
  13. FISH OIL [Concomitant]
  14. VITAMIN E [Concomitant]

REACTIONS (1)
  - Dysuria [Recovered/Resolved]
